FAERS Safety Report 9323931 (Version 1)
Quarter: 2013Q2

REPORT INFORMATION
  Report Type: Spontaneous
  Country: JP (occurrence: JP)
  Receive Date: 20130603
  Receipt Date: 20130603
  Transmission Date: 20140414
  Serious: Yes (Hospitalization, Disabling)
  Sender: FDA-Public Use
  Company Number: JP-BRISTOL-MYERS SQUIBB COMPANY-18936450

PATIENT
  Age: 64 Year
  Sex: 0

DRUGS (10)
  1. METGLUCO [Suspect]
     Dosage: INITIALLY START WITH 500 MG
     Route: 048
     Dates: start: 20130412
  2. LONGES [Concomitant]
  3. NORVASC [Concomitant]
  4. CRESTOR [Concomitant]
  5. METHYCOBAL [Concomitant]
  6. CEREKINON [Concomitant]
  7. ALLEGRA [Concomitant]
  8. AMARYL [Concomitant]
  9. MAGMITT [Concomitant]
  10. MYSLEE [Concomitant]

REACTIONS (3)
  - Hyperventilation [Unknown]
  - Vomiting [Unknown]
  - Nausea [Unknown]
